FAERS Safety Report 26150857 (Version 1)
Quarter: 2025Q4

REPORT INFORMATION
  Report Type: Spontaneous
  Country: GB (occurrence: GB)
  Receive Date: 20251212
  Receipt Date: 20251212
  Transmission Date: 20260118
  Serious: Yes (Other)
  Sender: ACCORD
  Company Number: None

PATIENT
  Age: 26 Year
  Sex: Female

DRUGS (3)
  1. EPLERENONE [Suspect]
     Active Substance: EPLERENONE
     Indication: Right ventricular failure
     Dosage: 25 MG DAILY
     Dates: start: 20250806, end: 20251126
  2. CALCIUM\VITAMIN D [Concomitant]
     Active Substance: CALCIUM\VITAMIN D
  3. PROGESTERONE [Concomitant]
     Active Substance: PROGESTERONE

REACTIONS (1)
  - Polymenorrhoea [Not Recovered/Not Resolved]
